FAERS Safety Report 11741474 (Version 7)
Quarter: 2016Q2

REPORT INFORMATION
  Report Type: Report from Study
  Country: BA (occurrence: BA)
  Receive Date: 20151116
  Receipt Date: 20160526
  Transmission Date: 20160815
  Serious: Yes (Hospitalization)
  Sender: FDA-Public Use
  Company Number: BA-ROCHE-1652715

PATIENT
  Age: 75 Year
  Sex: Female
  Weight: 80 kg

DRUGS (27)
  1. OBINUTUZUMAB [Suspect]
     Active Substance: OBINUTUZUMAB
     Indication: CHRONIC LYMPHOCYTIC LEUKAEMIA
     Dosage: 25MG/H, LAST DOSE PRIOR TO SAE: 26/OCT/2015
     Route: 042
     Dates: start: 20151026, end: 20151026
  2. OBINUTUZUMAB [Suspect]
     Active Substance: OBINUTUZUMAB
     Dosage: 100 MG/H, LAST DOSE PRIOR TO SAE: 26/OCT/2015 AND WAS INTERRUPTED ON 27/OCT/2015
     Route: 042
     Dates: start: 20151104, end: 20151104
  3. PANTOPRAZOL [Concomitant]
     Active Substance: PANTOPRAZOLE SODIUM
     Indication: PROPHYLAXIS
     Route: 048
     Dates: start: 20151020
  4. PANTOPRAZOL [Concomitant]
     Active Substance: PANTOPRAZOLE SODIUM
     Route: 042
     Dates: start: 20151026, end: 20151026
  5. PARACETAMOL [Concomitant]
     Active Substance: ACETAMINOPHEN
     Indication: PROPHYLAXIS
     Dosage: SUBSEQUENT DOSES WERE ADMINISTERED ON 04/NOV/2015, 10/NOV/2015, 17/NOV/2015, 01/DEC/2015, 29/DEC/201
     Route: 048
     Dates: start: 20151026, end: 20151026
  6. NACL .9% [Concomitant]
     Indication: PROPHYLAXIS
     Route: 042
     Dates: start: 20151025, end: 20151025
  7. NACL .9% [Concomitant]
     Dosage: SINGLE DOSE
     Route: 042
     Dates: start: 20151117, end: 20151117
  8. NACL .9% [Concomitant]
     Dosage: SINGLE DOSE
     Route: 042
     Dates: start: 20160302, end: 20160302
  9. KETOPROFEN. [Concomitant]
     Active Substance: KETOPROFEN
     Route: 042
     Dates: start: 20151026, end: 20151026
  10. NACL .9% [Concomitant]
     Dosage: SINGLE DOSE
     Route: 042
     Dates: start: 20151229, end: 20151229
  11. METILPREDNISOLONE [Concomitant]
     Active Substance: METHYLPREDNISOLONE
     Indication: PROPHYLAXIS
     Route: 042
     Dates: start: 20151026, end: 20151026
  12. METOKLOPRAMID [Concomitant]
     Dosage: SINGLE
     Route: 042
     Dates: start: 20151026, end: 20151026
  13. NACL .9% [Concomitant]
     Route: 042
     Dates: start: 20151026, end: 20151026
  14. NACL .9% [Concomitant]
     Dosage: SINGLE DOSE
     Route: 042
     Dates: start: 20151104, end: 20151104
  15. NACL .9% [Concomitant]
     Dosage: SINGLE DOSE
     Route: 042
     Dates: start: 20151201, end: 20151201
  16. PANTOPRAZOL [Concomitant]
     Active Substance: PANTOPRAZOLE SODIUM
     Route: 042
     Dates: start: 20160330, end: 20160330
  17. SULFAMETHOXAZOLE/TRIMETHOPRIM [Concomitant]
     Active Substance: SULFAMETHOXAZOLE\TRIMETHOPRIM
     Route: 048
     Dates: start: 20151231, end: 20160104
  18. FLUCONAZOLE. [Concomitant]
     Active Substance: FLUCONAZOLE
     Route: 048
     Dates: start: 20160222, end: 20160222
  19. ALLOPURINOL. [Concomitant]
     Active Substance: ALLOPURINOL
     Indication: PROPHYLAXIS
     Route: 048
     Dates: start: 20151005
  20. PARACETAMOL [Concomitant]
     Active Substance: ACETAMINOPHEN
     Route: 048
     Dates: start: 20160104, end: 20160119
  21. NACL .9% [Concomitant]
     Dosage: SINGLE DOSE
     Route: 042
     Dates: start: 20151110, end: 20151110
  22. CIPROFLOXACIN. [Concomitant]
     Active Substance: CIPROFLOXACIN
     Route: 048
     Dates: start: 20160104, end: 20160108
  23. ONDANSETRON [Concomitant]
     Active Substance: ONDANSETRON
     Route: 048
     Dates: start: 20151026, end: 20151026
  24. CHLOROPYRAMINE [Concomitant]
     Active Substance: CHLOROPYRAMINE
     Indication: PROPHYLAXIS
     Route: 042
     Dates: start: 20151026, end: 20151026
  25. METILPREDNISOLONE [Concomitant]
     Active Substance: METHYLPREDNISOLONE
     Dosage: SUBSEQUENT DOSES WERE ADMINISTERED ON 10/NOV/2015, 17/NOV/2015, 01/DEC/2015, 29/DEC/2015 AND 02/MAR/
     Route: 042
     Dates: start: 20151104, end: 20151104
  26. NACL .9% [Concomitant]
     Dosage: SINGLE DOSE
     Route: 042
     Dates: start: 20160330, end: 20160330
  27. AMOXICILLIN. [Concomitant]
     Active Substance: AMOXICILLIN
     Route: 048
     Dates: start: 20160222

REACTIONS (1)
  - Hepatic failure [Recovered/Resolved]

NARRATIVE: CASE EVENT DATE: 20151027
